FAERS Safety Report 8279580-4 (Version None)
Quarter: 2012Q2

REPORT INFORMATION
  Report Type: 
  Country: None (occurrence: None)
  Receive Date: 20120412
  Receipt Date: 20120130
  Transmission Date: 20120825
  Serious: No
  Sender: FDA-Public Use
  Company Number: US-ASTRAZENECA-2011SE67778

PATIENT
  Age: 65 Year
  Sex: Female

DRUGS (3)
  1. CELEBREX [Suspect]
  2. NEXIUM [Suspect]
     Route: 048
  3. VIMOVO [Suspect]
     Route: 048

REACTIONS (5)
  - ABDOMINAL PAIN UPPER [None]
  - DRUG DOSE OMISSION [None]
  - ARTHRALGIA [None]
  - ABDOMINAL DISTENSION [None]
  - GASTROOESOPHAGEAL REFLUX DISEASE [None]
